FAERS Safety Report 23242331 (Version 4)
Quarter: 2024Q3

REPORT INFORMATION
  Report Type: Spontaneous
  Country: US (occurrence: US)
  Receive Date: 20231129
  Receipt Date: 20240717
  Transmission Date: 20241017
  Serious: Yes (Death, Other)
  Sender: CHATTEM
  Company Number: US-OPELLA-2023OHG015976

PATIENT
  Age: 58 Year
  Sex: Male
  Weight: 67.6 kg

DRUGS (4)
  1. TALC [Suspect]
     Active Substance: TALC
     Indication: Product used for unknown indication
     Route: 065
  2. ALBUTEROL [Concomitant]
     Active Substance: ALBUTEROL
     Indication: Dyspnoea
     Dosage: 2 PUFF(S) INHALED EVERY 6 HOURS, AS NEEDED - PRN
     Route: 055
  3. LASIX [Concomitant]
     Active Substance: FUROSEMIDE
     Indication: Product used for unknown indication
     Route: 048
  4. POTASSIUM BICARBONATE [Concomitant]
     Active Substance: POTASSIUM BICARBONATE
     Indication: Product used for unknown indication
     Route: 048

REACTIONS (7)
  - Peritoneal mesothelioma malignant [Fatal]
  - Exposure to chemical pollution [Fatal]
  - Injury [Unknown]
  - Pain [Unknown]
  - Anxiety [Unknown]
  - Abnormal loss of weight [Unknown]
  - Malnutrition [Unknown]

NARRATIVE: CASE EVENT DATE: 20230417
